FAERS Safety Report 4990561-6 (Version None)
Quarter: 2006Q2

REPORT INFORMATION
  Report Type: 
  Country: None (occurrence: None)
  Receive Date: 20060427
  Receipt Date: 20060419
  Transmission Date: 20061013
  Serious: Yes (Other)
  Sender: FDA-Public Use
  Company Number: 2006-01537

PATIENT
  Age: 16 Year
  Sex: Female

DRUGS (2)
  1. MICROGESTIN FE 1/20 [Suspect]
     Indication: ORAL CONTRACEPTION
     Dosage: 1 TABLET, DAILY X 1 MONTH, ORAL
     Route: 048
     Dates: start: 20050901, end: 20051001
  2. LAMICTAL [Suspect]
     Indication: GRAND MAL CONVULSION
     Dosage: 1 TABLET BID ORAL
     Route: 048
     Dates: start: 20020601

REACTIONS (5)
  - ANTICONVULSANT DRUG LEVEL DECREASED [None]
  - CONDITION AGGRAVATED [None]
  - DRUG INTERACTION INHIBITION [None]
  - GRAND MAL CONVULSION [None]
  - TREATMENT NONCOMPLIANCE [None]
